FAERS Safety Report 21020742 (Version 6)
Quarter: 2022Q4

REPORT INFORMATION
  Report Type: Report from Study
  Country: AU (occurrence: None)
  Receive Date: 20220629
  Receipt Date: 20221013
  Transmission Date: 20230113
  Serious: Yes (Hospitalization)
  Sender: FDA-Public Use
  Company Number: AU-ROCHE-3121107

PATIENT
  Age: 52 Year
  Sex: Male
  Weight: 79 kg

DRUGS (22)
  1. GLOFITAMAB [Suspect]
     Active Substance: GLOFITAMAB
     Indication: B-cell lymphoma
     Dosage: ON 16/JUN/2022 AT 11:00 AM, HE RECEIVED THE MOST RECENT DOSE OF GLOFITAMAB (30 MG) PRIOR TO SAE ONSE
     Route: 042
     Dates: start: 20220322
  2. OBINUTUZUMAB [Suspect]
     Active Substance: OBINUTUZUMAB
     Indication: B-cell lymphoma
     Dosage: ON 15/MAR/2022 AT 12:15 PM, HE RECEIVED THE MOST RECENT DOSE OF OBINUTUZUMAB (1000 MG) PRIOR TO SAE
     Route: 042
     Dates: start: 20220315
  3. TOCILIZUMAB [Suspect]
     Active Substance: TOCILIZUMAB
     Indication: Cytokine release syndrome
     Dosage: ON 22/MAR/2022, HE RECEIVED THE MOST RECENT DOSE OF TOCILIZUMAB (620 MG) PRIOR TO SAE ONSET
     Route: 042
     Dates: start: 20220322, end: 20220323
  4. FILGRASTIM [Concomitant]
     Active Substance: FILGRASTIM
     Indication: Neutrophil count decreased
     Route: 058
     Dates: start: 20220607, end: 20220609
  5. FILGRASTIM [Concomitant]
     Active Substance: FILGRASTIM
     Dosage: 300 UG
     Route: 058
     Dates: start: 20220705, end: 20220707
  6. DEXAMETHASONE [Concomitant]
     Active Substance: DEXAMETHASONE
     Dates: start: 20220616, end: 20220616
  7. DEXAMETHASONE [Concomitant]
     Active Substance: DEXAMETHASONE
     Dates: start: 20220707, end: 20220707
  8. LORATADINE [Concomitant]
     Active Substance: LORATADINE
     Dates: start: 20220616, end: 20220616
  9. LORATADINE [Concomitant]
     Active Substance: LORATADINE
     Dates: start: 20220707, end: 20220707
  10. ACETAMINOPHEN [Concomitant]
     Active Substance: ACETAMINOPHEN
     Dates: start: 20220616, end: 20220616
  11. ACETAMINOPHEN [Concomitant]
     Active Substance: ACETAMINOPHEN
     Dates: start: 20220707, end: 20220707
  12. INSULIN ASPART [Concomitant]
     Active Substance: INSULIN ASPART
     Indication: Blood glucose increased
     Route: 058
     Dates: start: 20220322, end: 20220324
  13. CEPHALEXIN [Concomitant]
     Active Substance: CEPHALEXIN
     Indication: Skin infection
     Route: 048
     Dates: start: 20220531, end: 20220607
  14. ALLOPURINOL [Concomitant]
     Active Substance: ALLOPURINOL
     Dates: start: 20220311
  15. METFORMIN [Concomitant]
     Active Substance: METFORMIN HYDROCHLORIDE
     Indication: Type 2 diabetes mellitus
     Dates: start: 2020, end: 20220725
  16. VALACYCLOVIR HYDROCHLORIDE [Concomitant]
     Active Substance: VALACYCLOVIR HYDROCHLORIDE
     Dates: start: 2020
  17. LEVOTHYROXINE [Concomitant]
     Active Substance: LEVOTHYROXINE
     Dates: start: 2011
  18. CYANOCOBALAMIN [Concomitant]
     Active Substance: CYANOCOBALAMIN
     Dates: start: 2020
  19. ASCORBIC ACID [Concomitant]
     Active Substance: ASCORBIC ACID
     Dates: start: 2020
  20. NOVORAPID [Concomitant]
     Active Substance: INSULIN ASPART
     Indication: Type 2 diabetes mellitus
     Dates: start: 20220322
  21. ENOXAPARIN [Concomitant]
     Active Substance: ENOXAPARIN
     Dates: start: 20220322, end: 20220405
  22. MAGNESIUM SULFATE [Concomitant]
     Active Substance: MAGNESIUM SULFATE
     Indication: Hypomagnesaemia
     Dates: start: 20220322, end: 20220322

REACTIONS (2)
  - Cytokine release syndrome [Recovered/Resolved]
  - Cytokine release syndrome [Recovered/Resolved]

NARRATIVE: CASE EVENT DATE: 20220322
